FAERS Safety Report 14472916 (Version 2)
Quarter: 2018Q2

REPORT INFORMATION
  Report Type: Report from Study
  Country: US (occurrence: US)
  Receive Date: 20180201
  Receipt Date: 20180608
  Transmission Date: 20180711
  Serious: Yes (Hospitalization, Other)
  Sender: FDA-Public Use
  Company Number: PHEH2018US004131

PATIENT
  Sex: Male

DRUGS (1)
  1. ENTRESTO [Suspect]
     Active Substance: SACUBITRIL\VALSARTAN
     Indication: PRODUCT USED FOR UNKNOWN INDICATION
     Dosage: UNK
     Route: 048

REACTIONS (8)
  - Cyst [Unknown]
  - Haemorrhage urinary tract [Unknown]
  - Swelling [Unknown]
  - Device malfunction [Unknown]
  - Urinary tract infection [Unknown]
  - Cataract [Unknown]
  - Hernia [Unknown]
  - Arthralgia [Unknown]
